FAERS Safety Report 7943361 (Version 3)
Quarter: 2012Q4

REPORT INFORMATION
  Report Type: 
  Country: DK (occurrence: DK)
  Receive Date: 20110513
  Receipt Date: 20120912
  Transmission Date: 20130627
  Serious: Yes (Death, Other)
  Sender: FDA-Public Use
  Company Number: DK-RANBAXY-2011RR-44285

PATIENT
  Sex: Male

DRUGS (11)
  1. GABAPENTIN [Suspect]
     Indication: NEURALGIA
     Dosage: 3600 mg, qid
     Route: 048
     Dates: start: 20090220, end: 20090912
  2. CYMBALTA [Suspect]
     Indication: PAIN
     Dosage: UNK
     Route: 048
     Dates: start: 200901, end: 2010
  3. CYMBALTA [Suspect]
     Indication: NEURALGIA
  4. DIAZEPAM [Suspect]
     Indication: PAIN
     Dosage: UNK
     Route: 048
     Dates: start: 200901, end: 2010
  5. DIAZEPAM [Suspect]
     Indication: NEURALGIA
  6. ZARATOR [Concomitant]
     Indication: BLOOD CHOLESTEROL
     Dosage: 80 mg, UNK
     Route: 065
     Dates: start: 200909
  7. HJERDYL [Concomitant]
     Indication: PRODUCT USED FOR UNKNOWN INDICATION
     Dosage: 75 mg, UNK
     Route: 065
  8. LYRICA [Concomitant]
     Indication: PAIN
     Dosage: 120 mg, UNK
     Route: 065
     Dates: start: 20090626, end: 20100302
  9. CYMBALTA [Concomitant]
     Indication: PAIN
     Dosage: 120 mg, UNK
     Route: 065
     Dates: start: 20090626, end: 20100226
  10. METADONE [Concomitant]
     Indication: PAIN
     Dosage: 90 mg, UNK
     Route: 065
     Dates: start: 20090626, end: 20100302
  11. KETAMINE [Concomitant]
     Indication: PAIN
     Dosage: 100 mg, UNK
     Route: 065
     Dates: start: 20090810, end: 20120226

REACTIONS (5)
  - Disturbance in attention [Not Recovered/Not Resolved]
  - Fine motor delay [Unknown]
  - Erectile dysfunction [Unknown]
  - Tooth disorder [Unknown]
  - Drug ineffective [Unknown]
